FAERS Safety Report 5787954-6 (Version None)
Quarter: 2008Q2

REPORT INFORMATION
  Report Type: 
  Country: None (occurrence: None)
  Receive Date: 20080625
  Receipt Date: 20080623
  Transmission Date: 20081010
  Serious: Yes (Other)
  Sender: FDA-Public Use
  Company Number: B0526380A

PATIENT
  Age: 9 Year
  Sex: Female

DRUGS (3)
  1. RETROVIR [Suspect]
     Indication: HIV INFECTION
     Route: 048
     Dates: start: 19980824
  2. EPIVIR [Suspect]
     Indication: HIV INFECTION
     Route: 048
     Dates: start: 19980824
  3. RETROVIR [Suspect]

REACTIONS (4)
  - ASTROCYTOMA [None]
  - DRUG EXPOSURE DURING PREGNANCY [None]
  - HEADACHE [None]
  - NAUSEA [None]
